FAERS Safety Report 17889064 (Version 1)
Quarter: 2020Q2

REPORT INFORMATION
  Report Type: Spontaneous
  Country: SE (occurrence: SE)
  Receive Date: 20200612
  Receipt Date: 20200612
  Transmission Date: 20200714
  Serious: Yes (Other)
  Sender: FDA-Public Use
  Company Number: SE-ACCORD-185170

PATIENT
  Sex: Female
  Weight: 93 kg

DRUGS (7)
  1. ELIQUIS [Concomitant]
     Active Substance: APIXABAN
     Dates: start: 2019, end: 202004
  2. ATORVASTATIN [Concomitant]
     Active Substance: ATORVASTATIN
     Dates: start: 2019, end: 202004
  3. BISOPROLOL [Concomitant]
     Active Substance: BISOPROLOL
     Dates: start: 2019, end: 202004
  4. FOLACIN [Concomitant]
     Dates: start: 2019, end: 202004
  5. AMLODIPINE [Suspect]
     Active Substance: AMLODIPINE BESYLATE
     Indication: MYOCARDIAL INFARCTION
     Dates: start: 2019, end: 202004
  6. LEVAXIN [Concomitant]
     Active Substance: LEVOTHYROXINE SODIUM
     Dates: start: 2019, end: 202004
  7. OMEPRAZOLE. [Concomitant]
     Active Substance: OMEPRAZOLE
     Dates: start: 2019, end: 202004

REACTIONS (3)
  - Alopecia [Recovered/Resolved with Sequelae]
  - Dermatitis [Recovered/Resolved with Sequelae]
  - Erythema [Recovered/Resolved with Sequelae]
